FAERS Safety Report 24987461 (Version 1)
Quarter: 2025Q1

REPORT INFORMATION
  Report Type: Spontaneous
  Country: RS (occurrence: RS)
  Receive Date: 20250219
  Receipt Date: 20250219
  Transmission Date: 20250409
  Serious: Yes (Hospitalization, Other)
  Sender: NOVARTIS
  Company Number: RS-002147023-NVSC2024RS237914

PATIENT
  Age: 60 Year
  Sex: Male

DRUGS (1)
  1. NILOTINIB [Suspect]
     Active Substance: NILOTINIB
     Indication: Chronic myeloid leukaemia
     Dosage: 400 MG, BID
     Route: 065
     Dates: start: 20150311, end: 20240821

REACTIONS (12)
  - Cardiac failure acute [Unknown]
  - Atrial fibrillation [Not Recovered/Not Resolved]
  - Hepatomegaly [Unknown]
  - Cardiomyopathy [Not Recovered/Not Resolved]
  - Drug resistance [Unknown]
  - Pleural effusion [Unknown]
  - Blood glucose increased [Not Recovered/Not Resolved]
  - Blood cholesterol increased [Not Recovered/Not Resolved]
  - Hyperlipidaemia [Unknown]
  - Hyperglycaemia [Not Recovered/Not Resolved]
  - Hypercholesterolaemia [Not Recovered/Not Resolved]
  - Cytogenetic response [Unknown]

NARRATIVE: CASE EVENT DATE: 20150901
